FAERS Safety Report 15044493 (Version 1)
Quarter: 2018Q2

REPORT INFORMATION
  Report Type: Spontaneous
  Country: FR (occurrence: FR)
  Receive Date: 20180621
  Receipt Date: 20180621
  Transmission Date: 20180711
  Serious: Yes (Hospitalization)
  Sender: FDA-Public Use
  Company Number: FR-TEVA-2018-FR-911235

PATIENT
  Age: 76 Year
  Sex: Male
  Weight: 70 kg

DRUGS (12)
  1. TARCEVA [Suspect]
     Active Substance: ERLOTINIB HYDROCHLORIDE
     Indication: LUNG ADENOCARCINOMA
     Dosage: 100 MILLIGRAM DAILY;
     Route: 048
     Dates: start: 20180405, end: 20180501
  2. PANTOPRAZOLE [Concomitant]
     Active Substance: PANTOPRAZOLE
     Route: 065
  3. PAROXETINE. [Concomitant]
     Active Substance: PAROXETINE
  4. TARCEVA [Concomitant]
     Active Substance: ERLOTINIB HYDROCHLORIDE
     Route: 065
  5. AMIODARONE [Concomitant]
     Active Substance: AMIODARONE
     Route: 065
  6. INNOHEP [Concomitant]
     Active Substance: TINZAPARIN SODIUM
     Route: 065
  7. FUROSEMIDE. [Concomitant]
     Active Substance: FUROSEMIDE
     Route: 065
  8. TRAMADOL. [Concomitant]
     Active Substance: TRAMADOL
  9. XANAX [Concomitant]
     Active Substance: ALPRAZOLAM
     Dosage: 0-0-0-1
     Route: 065
  10. TRAMADOL LP [Suspect]
     Active Substance: TRAMADOL HYDROCHLORIDE
  11. AMIODARONE [Suspect]
     Active Substance: AMIODARONE
     Indication: ATRIAL FIBRILLATION
     Dosage: 1 DOSAGE FORMS DAILY; 1-0-0
     Route: 048
     Dates: end: 20180501
  12. TANGANIL [Concomitant]
     Active Substance: ACETYLLEUCINE
     Dosage: 2-0-2
     Route: 065

REACTIONS (1)
  - Lung disorder [Recovering/Resolving]

NARRATIVE: CASE EVENT DATE: 20180501
